FAERS Safety Report 13135779 (Version 11)
Quarter: 2019Q4

REPORT INFORMATION
  Report Type: Report from Study
  Country: US (occurrence: US)
  Receive Date: 20170120
  Receipt Date: 20191126
  Transmission Date: 20200122
  Serious: Yes (Death, Hospitalization, Other)
  Sender: FDA-Public Use
  Company Number: US-ACTELION-A-US2017-148467

PATIENT
  Age: 62 Year
  Sex: Female
  Weight: 106.58 kg

DRUGS (21)
  1. OPSUMIT [Suspect]
     Active Substance: MACITENTAN
     Dosage: 10 MG, QD
     Route: 048
  2. LEVOTHYROXINE. [Concomitant]
     Active Substance: LEVOTHYROXINE
     Dosage: 88 MCG, QD
     Route: 048
  3. SPIRONOLACTONE. [Concomitant]
     Active Substance: SPIRONOLACTONE
     Dosage: 100 MG, BID
     Route: 048
  4. FUROSEMIDE. [Concomitant]
     Active Substance: FUROSEMIDE
     Dosage: 20 MG, BID
     Route: 048
  5. LANTUS [Concomitant]
     Active Substance: INSULIN GLARGINE
     Dosage: 100 U, QD
     Route: 058
  6. CLONAZEPAM. [Concomitant]
     Active Substance: CLONAZEPAM
     Dosage: 1 MG, TID PRN
     Route: 048
  7. SIMVASTATIN. [Concomitant]
     Active Substance: SIMVASTATIN
     Dosage: 40 MG, QPM
  8. VENTOLIN [Concomitant]
     Active Substance: ALBUTEROL SULFATE
     Dosage: 1 PUFF Q4H PRN
     Route: 055
  9. FLOVENT [Concomitant]
     Active Substance: FLUTICASONE PROPIONATE
     Dosage: 2 PUFFS BID
     Route: 055
  10. SUCRALFATE. [Concomitant]
     Active Substance: SUCRALFATE
     Dosage: 1 G, UNK
     Route: 048
  11. HUMALOG [Concomitant]
     Active Substance: INSULIN LISPRO
     Dosage: AS DIRECTED
     Route: 058
  12. LOSARTAN POTASSIUM. [Concomitant]
     Active Substance: LOSARTAN POTASSIUM
     Dosage: 100 MG, QD
     Route: 048
  13. DULERA [Concomitant]
     Active Substance: FORMOTEROL FUMARATE DIHYDRATE\MOMETASONE FUROATE
     Route: 055
  14. INDERAL [Concomitant]
     Active Substance: PROPRANOLOL HYDROCHLORIDE
     Dosage: 120 MG, UNK
     Route: 048
  15. DEXILANT [Concomitant]
     Active Substance: DEXLANSOPRAZOLE
     Dosage: 60 MG, QD
     Route: 048
  16. ONDANSETRON [Concomitant]
     Active Substance: ONDANSETRON
     Dosage: 8 MG, PRN
     Route: 048
  17. SINGULAIR [Concomitant]
     Active Substance: MONTELUKAST SODIUM
     Dosage: 10 MG, QD
     Route: 048
  18. RANITIDINE. [Concomitant]
     Active Substance: RANITIDINE
     Dosage: 300 MG, QPM
     Route: 048
  19. OPSUMIT [Suspect]
     Active Substance: MACITENTAN
     Indication: PULMONARY ARTERIAL HYPERTENSION
     Dosage: 10 MG, QD
     Route: 048
     Dates: start: 20140425
  20. WARFARIN [Concomitant]
     Active Substance: WARFARIN
     Dosage: 8 MG, QD
     Route: 048
  21. NITROSTAT [Concomitant]
     Active Substance: NITROGLYCERIN
     Dosage: 0.4 MG, PRN
     Route: 060

REACTIONS (51)
  - Hepatic encephalopathy [Unknown]
  - Portal hypertension [Unknown]
  - Cardiac failure chronic [Recovered/Resolved]
  - Malaise [Unknown]
  - Liver function test abnormal [Unknown]
  - Chronic obstructive pulmonary disease [Unknown]
  - Oedema [Unknown]
  - Oesophagitis [Unknown]
  - Helicobacter infection [Unknown]
  - Peptic ulcer [Unknown]
  - Pain [Unknown]
  - Diarrhoea [Recovering/Resolving]
  - Type 2 diabetes mellitus [Unknown]
  - Blood glucose decreased [Unknown]
  - Blood alkaline phosphatase increased [Unknown]
  - Nausea [Unknown]
  - Pulmonary arterial hypertension [Unknown]
  - Blood potassium abnormal [Unknown]
  - Platelet count decreased [Unknown]
  - Haemoglobin decreased [Unknown]
  - Mineral supplementation [Unknown]
  - Blood magnesium abnormal [Unknown]
  - Hepatic failure [Unknown]
  - Dizziness [Unknown]
  - Angina pectoris [Unknown]
  - Abdominal pain upper [Unknown]
  - Colon adenoma [Unknown]
  - Memory impairment [Unknown]
  - Death [Fatal]
  - Ascites [Unknown]
  - Hypoxia [Recovered/Resolved]
  - Vomiting [Recovering/Resolving]
  - Dysfunctional uterine bleeding [Unknown]
  - Sinusitis [Unknown]
  - Concomitant disease aggravated [Unknown]
  - Pneumothorax [Unknown]
  - Syncope [Unknown]
  - Haematochezia [Unknown]
  - Diabetic neuropathy [Unknown]
  - Haematuria [Unknown]
  - Embolism venous [Unknown]
  - Hepatic cirrhosis [Unknown]
  - Pleural effusion [Unknown]
  - Blood bilirubin increased [Unknown]
  - Aspartate aminotransferase increased [Unknown]
  - Fluid retention [Unknown]
  - Hypertension [Unknown]
  - Vena cava embolism [Unknown]
  - Urinary tract infection [Unknown]
  - Weight decreased [Unknown]
  - Anaemia [Unknown]

NARRATIVE: CASE EVENT DATE: 201701
